FAERS Safety Report 9282822 (Version 2)
Quarter: 2013Q2

REPORT INFORMATION
  Report Type: Spontaneous
  Country: US (occurrence: None)
  Receive Date: 20130506
  Receipt Date: 20130530
  Transmission Date: 20140414
  Serious: Yes (Other)
  Sender: FDA-Public Use
  Company Number: SYM-2013-03533

PATIENT
  Age: 63 Year
  Sex: Male

DRUGS (2)
  1. TIMOPTIC [Suspect]
     Indication: INTRAOCULAR PRESSURE INCREASED
     Route: 031
     Dates: start: 19851025
  2. PILOCARPINE (PILOCARPINE) (PILOCARPINE) [Concomitant]

REACTIONS (4)
  - Cataract [None]
  - Vision blurred [None]
  - Miosis [None]
  - Night blindness [None]
